FAERS Safety Report 5899676-1 (Version None)
Quarter: 2008Q3

REPORT INFORMATION
  Report Type: 
  Country: None (occurrence: None)
  Receive Date: 20080926
  Receipt Date: 20080919
  Transmission Date: 20090109
  Serious: Yes (Life-Threatening, Other)
  Sender: FDA-Public Use
  Company Number: BR-WYE-H06074708

PATIENT
  Sex: Male
  Weight: 68 kg

DRUGS (3)
  1. EFFEXOR XR [Suspect]
     Indication: DEPRESSION
     Route: 048
     Dates: start: 20080610, end: 20080917
  2. OLCADIL [Concomitant]
     Dosage: UNSPECIFIED
     Route: 048
     Dates: start: 20080610, end: 20080917
  3. NEOZINE [Concomitant]
     Indication: SLEEP DISORDER
     Route: 048
     Dates: start: 20080610

REACTIONS (10)
  - AGGRESSION [None]
  - AGITATION [None]
  - DECREASED APPETITE [None]
  - DEPRESSION [None]
  - FLUID INTAKE REDUCED [None]
  - SELF INJURIOUS BEHAVIOUR [None]
  - SKIN LACERATION [None]
  - SUICIDAL IDEATION [None]
  - SUICIDE ATTEMPT [None]
  - WEIGHT DECREASED [None]
